FAERS Safety Report 5871349-0 (Version None)
Quarter: 2008Q3

REPORT INFORMATION
  Report Type: 
  Country: None (occurrence: None)
  Receive Date: 20080904
  Receipt Date: 20080904
  Transmission Date: 20090109
  Serious: Yes (Other)
  Sender: FDA-Public Use
  Company Number: None

PATIENT
  Sex: Male
  Weight: 99.7913 kg

DRUGS (4)
  1. DEPAKOTE [Suspect]
     Indication: DEPRESSION
     Dosage: 500 MG 1
     Dates: start: 20070919
  2. DEPAKOTE [Suspect]
     Indication: SCHIZOPHRENIA
     Dosage: 500 MG 1
     Dates: start: 20070919
  3. DEPAKOTE [Suspect]
     Indication: DEPRESSION
     Dosage: 500 MG 1
     Dates: start: 20080811
  4. DEPAKOTE [Suspect]
     Indication: SCHIZOPHRENIA
     Dosage: 500 MG 1
     Dates: start: 20080811

REACTIONS (6)
  - ARTHROPATHY [None]
  - BLOOD PRESSURE INCREASED [None]
  - DYSPNOEA [None]
  - INSOMNIA [None]
  - MALAISE [None]
  - WEIGHT INCREASED [None]
